FAERS Safety Report 16625288 (Version 1)
Quarter: 2019Q3

REPORT INFORMATION
  Report Type: Spontaneous
  Country: US (occurrence: US)
  Receive Date: 20190724
  Receipt Date: 20190724
  Transmission Date: 20191004
  Serious: Yes (Hospitalization)
  Sender: FDA-Public Use
  Company Number: None

PATIENT
  Age: 59 Year
  Sex: Female
  Weight: 54 kg

DRUGS (14)
  1. LORAZEPAM. [Concomitant]
     Active Substance: LORAZEPAM
  2. REMERON [Concomitant]
     Active Substance: MIRTAZAPINE
  3. DEXAMETHASONE. [Concomitant]
     Active Substance: DEXAMETHASONE
  4. MONTELUKAST [Concomitant]
     Active Substance: MONTELUKAST SODIUM
  5. KEPPRA [Concomitant]
     Active Substance: LEVETIRACETAM
  6. PREDNISONE. [Concomitant]
     Active Substance: PREDNISONE
  7. EFFER-K [Concomitant]
  8. AMOXICILLIN. [Concomitant]
     Active Substance: AMOXICILLIN
  9. PROCHLORPERAZINE. [Concomitant]
     Active Substance: PROCHLORPERAZINE
  10. TYKERB [Suspect]
     Active Substance: LAPATINIB DITOSYLATE
     Indication: BREAST CANCER FEMALE
     Dates: start: 20190610
  11. FUROSEMIDE. [Concomitant]
     Active Substance: FUROSEMIDE
  12. ATENOLOL. [Concomitant]
     Active Substance: ATENOLOL
  13. NEUPOGEN [Concomitant]
     Active Substance: FILGRASTIM
  14. VALACYCLOVIR [Concomitant]
     Active Substance: VALACYCLOVIR HYDROCHLORIDE

REACTIONS (1)
  - Hospitalisation [None]

NARRATIVE: CASE EVENT DATE: 20190724
